FAERS Safety Report 22245520 (Version 1)
Quarter: 2023Q2

REPORT INFORMATION
  Report Type: Spontaneous
  Country: US (occurrence: None)
  Receive Date: 20230423
  Receipt Date: 20230423
  Transmission Date: 20230722
  Serious: Yes (Hospitalization, Other)
  Sender: FDA-Public Use
  Company Number: None

PATIENT
  Age: 39 Year
  Sex: 0

DRUGS (1)
  1. METHADONE [Suspect]
     Active Substance: METHADONE HYDROCHLORIDE
     Dates: start: 20160101

REACTIONS (2)
  - Gastric ulcer [None]
  - Product preparation issue [None]

NARRATIVE: CASE EVENT DATE: 20230401
